FAERS Safety Report 7580087-8 (Version None)
Quarter: 2011Q2

REPORT INFORMATION
  Report Type: 
  Country: None (occurrence: None)
  Receive Date: 20110527
  Receipt Date: 20101027
  Transmission Date: 20111010
  Serious: Yes (Hospitalization, Other)
  Sender: FDA-Public Use
  Company Number: US201001002577

PATIENT
  Sex: Female
  Weight: 62.6 kg

DRUGS (11)
  1. HYDROCHLOROTHIAZIDE [Concomitant]
  2. PRAVASTATIN [Concomitant]
  3. LOVASTATIN [Concomitant]
  4. TYLENOL /SCH/ (PARACETAMOL) [Concomitant]
  5. CALCIUM (CALCIUM) [Concomitant]
  6. BYETTA [Suspect]
     Indication: DIABETES MELLITUS
     Dosage: 10 UG, 2/D, SUBCUTANEOUS
     Route: 058
     Dates: start: 20061013, end: 20081212
  7. AVANDIA [Concomitant]
  8. GLUCOPHAGE [Concomitant]
  9. ISOSORBIDE (ISOSORBIDE) [Concomitant]
  10. JANUMET [Concomitant]
  11. TRICOR [Concomitant]

REACTIONS (1)
  - PANCREATITIS ACUTE [None]
